FAERS Safety Report 18166039 (Version 1)
Quarter: 2020Q3

REPORT INFORMATION
  Report Type: Spontaneous
  Country: US (occurrence: US)
  Receive Date: 20200818
  Receipt Date: 20200818
  Transmission Date: 20201103
  Serious: Yes (Other)
  Sender: FDA-Public Use
  Company Number: US-OTSUKA-2018_024091

PATIENT
  Sex: Female

DRUGS (36)
  1. XANAX [Concomitant]
     Active Substance: ALPRAZOLAM
     Indication: DEPRESSION
     Dosage: 1 MG, BID, (EVERY MORNING AND EVENING)
     Route: 048
  2. VENTOLIN HFA [Concomitant]
     Active Substance: ALBUTEROL SULFATE
     Indication: BRONCHITIS
     Dosage: 90 ?G, QD, (ACUTAT 2 PUFF FOUR TIMES DAILY)
     Route: 065
  3. TRAMADOL. [Concomitant]
     Active Substance: TRAMADOL
     Indication: ABSCESS
  4. BRINTELLIX [Concomitant]
     Active Substance: VORTIOXETINE HYDROBROMIDE
     Indication: ANXIETY
     Dosage: 10 MG, QD
     Route: 065
  5. AUGMENTIN [Concomitant]
     Active Substance: AMOXICILLIN\CLAVULANATE POTASSIUM
     Indication: ACUTE SINUSITIS
     Dosage: 1 DF, BID, (875?125 MG  X10 DAYS)
     Route: 048
  6. ABILIFY [Suspect]
     Active Substance: ARIPIPRAZOLE
     Indication: ANXIETY
     Dosage: 20 MG, QD
     Route: 048
  7. HYDROCHLOROTHIAZIDE. [Concomitant]
     Active Substance: HYDROCHLOROTHIAZIDE
     Indication: HYPERTENSION
  8. HYDROCODONE BITARTRATE AND ACETAMINOPHEN [Concomitant]
     Active Substance: ACETAMINOPHEN\HYDROCODONE BITARTRATE
     Indication: FALL
     Dosage: UNK, [HYDROCODONE: 5 MG]/[ACETAMINOPHEN: 325 MG] (1 Q 6 H AS NEEDED)
     Route: 065
  9. BUPAP [Concomitant]
     Active Substance: ACETAMINOPHEN\BUTALBITAL
     Indication: HEADACHE
     Dosage: UNK, (50?300 MG 1 OR 2 TABLET EVERY 6 HRS AS NEEDED)
     Route: 048
  10. CLARITIN [Concomitant]
     Active Substance: LORATADINE
     Indication: HYPERSENSITIVITY
     Dosage: 10 MG, QD
     Route: 065
  11. FLEXERIL [Concomitant]
     Active Substance: CYCLOBENZAPRINE HYDROCHLORIDE
     Indication: FALL
     Dosage: 5 MG, QD
     Route: 048
  12. NAPRELAN [Concomitant]
     Active Substance: NAPROXEN SODIUM
     Indication: BACK PAIN
     Dosage: 1000 MG, QD
     Route: 065
  13. ULTRAM [Concomitant]
     Active Substance: TRAMADOL HYDROCHLORIDE
     Indication: BACK PAIN
     Dosage: 100 MG, UNK, (Q4?Q6, AS NEEDED)
     Route: 048
  14. ARIPIPRAZOLE. [Concomitant]
     Active Substance: ARIPIPRAZOLE
     Indication: PRODUCT USED FOR UNKNOWN INDICATION
     Dosage: UNK
     Route: 065
     Dates: end: 201607
  15. DIFLUCAN [Concomitant]
     Active Substance: FLUCONAZOLE
     Indication: VAGINAL DISCHARGE
  16. DIFLUCAN [Concomitant]
     Active Substance: FLUCONAZOLE
     Indication: VAGINAL INFECTION
  17. ROCEPHIN [Concomitant]
     Active Substance: CEFTRIAXONE SODIUM
     Indication: VAGINAL INFECTION
     Dosage: 250 MG, UNK
     Route: 065
  18. ABILIFY [Suspect]
     Active Substance: ARIPIPRAZOLE
     Indication: BIPOLAR DISORDER
     Dosage: 5 MG, QD
     Route: 048
  19. DEPAKOTE [Concomitant]
     Active Substance: DIVALPROEX SODIUM
     Indication: PRODUCT USED FOR UNKNOWN INDICATION
     Dosage: 500 MG, UNK
     Route: 065
  20. KEFLEX [Concomitant]
     Active Substance: CEPHALEXIN
     Indication: BIPOLAR DISORDER
     Dosage: 500 MG, TID, ( 1 Q 8H)
     Route: 065
  21. KEFLEX [Concomitant]
     Active Substance: CEPHALEXIN
     Indication: ABSCESS
  22. TRAMADOL. [Concomitant]
     Active Substance: TRAMADOL
     Indication: CELLULITIS
  23. LITHIUM CARBONATE. [Concomitant]
     Active Substance: LITHIUM CARBONATE
     Indication: PRODUCT USED FOR UNKNOWN INDICATION
     Dosage: 300 MG, QD
     Route: 048
  24. XANAX [Concomitant]
     Active Substance: ALPRAZOLAM
     Indication: ANXIETY
     Dosage: 1 MG, UNK, (AS NEEDED)
     Route: 048
  25. DIFLUCAN [Concomitant]
     Active Substance: FLUCONAZOLE
     Indication: VULVOVAGINAL PRURITUS
     Dosage: 150 MG, SINGLE
     Route: 048
  26. METRONIDAZOLE. [Concomitant]
     Active Substance: METRONIDAZOLE
     Indication: VULVOVAGINAL PRURITUS
     Dosage: 500 MG, BID, (TWICE DAILY)
     Route: 048
  27. HYDROCHLOROTHIAZIDE. [Concomitant]
     Active Substance: HYDROCHLOROTHIAZIDE
     Indication: ANXIETY
     Dosage: 12.5 MG, QD
     Route: 048
  28. LOMOTIL [Concomitant]
     Active Substance: ATROPINE SULFATE\DIPHENOXYLATE HYDROCHLORIDE
     Indication: DIARRHOEA
     Dosage: UNK, TID, (2.5 ? 0.025 MG AS NEEDED)
     Route: 065
  29. MOBIC [Concomitant]
     Active Substance: MELOXICAM
     Indication: FALL
     Dosage: 15 MG, UNK
     Route: 048
  30. ZOFRAN [Concomitant]
     Active Substance: ONDANSETRON HYDROCHLORIDE
     Indication: NAUSEA
     Dosage: 4 MG, TID, (Q 8H AS NEEDED)
     Route: 048
  31. TRAMADOL. [Concomitant]
     Active Substance: TRAMADOL
     Indication: BACK PAIN
     Dosage: 50 MG, UNK, (EVERY 4 TO 6 HRS AS NEEDED)
     Route: 065
  32. ZITHROMAX [Concomitant]
     Active Substance: AZITHROMYCIN DIHYDRATE
     Indication: VAGINAL INFECTION
     Dosage: 500 MG, UNK
     Route: 065
  33. ABILIFY [Suspect]
     Active Substance: ARIPIPRAZOLE
     Dosage: UNK
     Route: 065
     Dates: end: 2016
  34. PRISTIQ EXTENDED?RELEASE [Concomitant]
     Active Substance: DESVENLAFAXINE SUCCINATE
     Indication: DEPRESSION
     Dosage: 50 MG, QD
     Route: 065
  35. KEFLEX [Concomitant]
     Active Substance: CEPHALEXIN
     Indication: CELLULITIS
  36. KEFLEX [Concomitant]
     Active Substance: CEPHALEXIN
     Indication: VAGINAL INFECTION

REACTIONS (17)
  - Homeless [Unknown]
  - Product dose omission issue [Unknown]
  - Malaise [Unknown]
  - Compulsive hoarding [Not Recovered/Not Resolved]
  - Product use in unapproved indication [Unknown]
  - Suicidal ideation [Not Recovered/Not Resolved]
  - Injury [Unknown]
  - Obsessive-compulsive disorder [Unknown]
  - Gambling disorder [Recovered/Resolved]
  - Economic problem [Unknown]
  - Bankruptcy [Unknown]
  - Suicide attempt [Not Recovered/Not Resolved]
  - Sexually transmitted disease [Unknown]
  - Condition aggravated [Recovered/Resolved]
  - Mental disorder [Unknown]
  - Compulsive sexual behaviour [Not Recovered/Not Resolved]
  - Loss of employment [Unknown]

NARRATIVE: CASE EVENT DATE: 201301
